FAERS Safety Report 19360065 (Version 1)
Quarter: 2021Q2

REPORT INFORMATION
  Report Type: Report from Study
  Country: US (occurrence: US)
  Receive Date: 20210602
  Receipt Date: 20210602
  Transmission Date: 20210717
  Serious: Yes (Death)
  Sender: FDA-Public Use
  Company Number: US-ASTRAZENECA-2021A480978

PATIENT
  Age: 66 Year
  Sex: Male

DRUGS (1)
  1. FASENRA [Suspect]
     Active Substance: BENRALIZUMAB
     Indication: ASTHMA
     Dosage: 1 SYRINGE, EVERY EIGHT WEEKS
     Route: 058
     Dates: start: 20201105

REACTIONS (1)
  - Death [Fatal]

NARRATIVE: CASE EVENT DATE: 20210409
